FAERS Safety Report 9153618 (Version 1)
Quarter: 2013Q1

REPORT INFORMATION
  Report Type: Spontaneous
  Country: US (occurrence: None)
  Receive Date: 20130306
  Receipt Date: 20130306
  Transmission Date: 20140127
  Serious: No
  Sender: FDA-Public Use
  Company Number: None

PATIENT
  Sex: Female
  Weight: 70.76 kg

DRUGS (2)
  1. IMITREX [Suspect]
     Indication: MIGRAINE WITHOUT AURA
     Dosage: IMITREX 50MG ORAL
     Route: 048
     Dates: start: 2005, end: 2006
  2. ZOMIG [Suspect]
     Dosage: ZOMIG 5MG ORAL
     Route: 048
     Dates: start: 2006, end: 2007

REACTIONS (1)
  - No therapeutic response [None]
